FAERS Safety Report 7308602-X (Version None)
Quarter: 2011Q1

REPORT INFORMATION
  Report Type: 
  Country: None (occurrence: None)
  Receive Date: 20110223
  Receipt Date: 20110216
  Transmission Date: 20110831
  Serious: Yes (Death)
  Sender: FDA-Public Use
  Company Number: ET-AMGEN-ETHSP2011008143

PATIENT
  Sex: Female

DRUGS (6)
  1. ELSPAR [Concomitant]
  2. VINCRISTINE [Concomitant]
  3. ADRIAMYCIN PFS [Concomitant]
  4. NEUPOGEN [Suspect]
     Indication: CHEMOTHERAPY
  5. PREDNISONE [Concomitant]
  6. CEFTAZIDIME [Concomitant]

REACTIONS (1)
  - SEPSIS [None]
